FAERS Safety Report 19948519 (Version 2)
Quarter: 2021Q4

REPORT INFORMATION
  Report Type: Spontaneous
  Country: US (occurrence: None)
  Receive Date: 20211012
  Receipt Date: 20211115
  Transmission Date: 20220303
  Serious: Yes (Hospitalization)
  Sender: FDA-Public Use
  Company Number: US-FARMAPROD-202110-1785

PATIENT
  Age: 59 Year
  Sex: Female

DRUGS (11)
  1. OXERVATE [Suspect]
     Active Substance: CENEGERMIN-BKBJ
     Indication: Neurotrophic keratopathy
     Route: 047
     Dates: start: 20210708, end: 20210902
  2. OXERVATE [Suspect]
     Active Substance: CENEGERMIN-BKBJ
     Indication: Illness
     Route: 047
     Dates: start: 20210909
  3. THERATEARS [Concomitant]
     Active Substance: CARBOXYMETHYLCELLULOSE SODIUM
  4. ACETAMINOPHEN [Concomitant]
     Active Substance: ACETAMINOPHEN
  5. ASPIRIN [Concomitant]
     Active Substance: ASPIRIN
  6. TRIAMTERENE/HYDROCHLOROTHIAZID [Concomitant]
  7. RINVOQ [Concomitant]
     Active Substance: UPADACITINIB
  8. ATORVASTATIN CALCIUM [Concomitant]
     Active Substance: ATORVASTATIN CALCIUM
  9. PREDNISONE [Concomitant]
     Active Substance: PREDNISONE
  10. PRED FORTE [Concomitant]
     Active Substance: PREDNISOLONE ACETATE
  11. AMLODIPINE BESYLATE [Concomitant]
     Active Substance: AMLODIPINE BESYLATE

REACTIONS (1)
  - COVID-19 [Unknown]

NARRATIVE: CASE EVENT DATE: 20210901
